FAERS Safety Report 7223860-8 (Version None)
Quarter: 2011Q1

REPORT INFORMATION
  Report Type: 
  Country: None (occurrence: None)
  Receive Date: 20110112
  Receipt Date: 20110105
  Transmission Date: 20110831
  Serious: Yes (Hospitalization)
  Sender: FDA-Public Use
  Company Number: GB-ELI_LILLY_AND_COMPANY-GB201101000945

PATIENT
  Age: 66 Year
  Sex: Female
  Weight: 125.4 kg

DRUGS (8)
  1. EZETIMIBE [Concomitant]
  2. LEVEMIR [Concomitant]
  3. NOVORAPID [Concomitant]
  4. CANDESARTAN CILEXETIL [Concomitant]
  5. TIOTROPIUM BROMIDE [Concomitant]
  6. BYETTA [Suspect]
     Indication: DIABETES MELLITUS
     Dosage: 5 UG, DAILY (1/D)
     Dates: start: 20100430, end: 20100501
  7. ASPIRIN [Concomitant]
  8. SYMBICORT [Concomitant]

REACTIONS (2)
  - OFF LABEL USE [None]
  - DYSPNOEA [None]
